FAERS Safety Report 6783632-5 (Version None)
Quarter: 2010Q2

REPORT INFORMATION
  Report Type: 
  Country: None (occurrence: None)
  Receive Date: 20100622
  Receipt Date: 20100611
  Transmission Date: 20101027
  Serious: Yes (Other)
  Sender: FDA-Public Use
  Company Number: PHHY2010CA38471

PATIENT
  Sex: Female

DRUGS (1)
  1. SANDOSTATIN [Suspect]
     Indication: METASTATIC NEOPLASM
     Dosage: UNK DOSE THRICE DAILY
     Route: 058
     Dates: start: 20100517

REACTIONS (2)
  - GENERAL PHYSICAL HEALTH DETERIORATION [None]
  - PALLIATIVE CARE [None]
